FAERS Safety Report 4576340-2 (Version None)
Quarter: 2005Q1

REPORT INFORMATION
  Report Type: 
  Country: None (occurrence: None)
  Receive Date: 20050207
  Receipt Date: 20050201
  Transmission Date: 20050727
  Serious: Yes (Other)
  Sender: FDA-Public Use
  Company Number: FRWYE390101FEB05

PATIENT
  Age: 35 Year
  Sex: Male

DRUGS (2)
  1. EFFEXOR XR [Suspect]
     Dosage: SEE IMAGE
     Route: 048
     Dates: start: 20041101, end: 20050101
  2. EFFEXOR XR [Suspect]
     Dosage: SEE IMAGE
     Route: 048
     Dates: end: 20050101

REACTIONS (2)
  - HAEMATOSPERMIA [None]
  - HAEMATURIA [None]
